FAERS Safety Report 15083322 (Version 1)
Quarter: 2018Q2

REPORT INFORMATION
  Report Type: Report from Study
  Country: CA (occurrence: CA)
  Receive Date: 20180628
  Receipt Date: 20180628
  Transmission Date: 20180711
  Serious: Yes (Hospitalization, Other)
  Sender: FDA-Public Use
  Company Number: CA-JNJFOC-20180438176

PATIENT
  Age: 70 Year
  Sex: Female

DRUGS (1)
  1. REMICADE [Suspect]
     Active Substance: INFLIXIMAB
     Indication: COLITIS ULCERATIVE
     Route: 042
     Dates: start: 20180419, end: 20180504

REACTIONS (5)
  - Nausea [Unknown]
  - Deep vein thrombosis [Unknown]
  - Hyperhidrosis [Unknown]
  - Colectomy [Unknown]
  - Ileostomy [Unknown]

NARRATIVE: CASE EVENT DATE: 201804
